FAERS Safety Report 9543836 (Version 3)
Quarter: 2014Q3

REPORT INFORMATION
  Report Type: Spontaneous
  Country: JP (occurrence: JP)
  Receive Date: 20130923
  Receipt Date: 20140812
  Transmission Date: 20150326
  Serious: Yes (Other)
  Sender: FDA-Public Use
  Company Number: JP-009507513-1309JPN001327

PATIENT
  Age: 10 Year
  Sex: Male
  Weight: 35 kg

DRUGS (9)
  1. MONTELUKAST [Suspect]
     Active Substance: MONTELUKAST SODIUM
     Indication: COUGH
     Dosage: DAILY DOSE UNKNOWN
     Route: 048
     Dates: start: 2012
  2. MONTELUKAST [Suspect]
     Active Substance: MONTELUKAST SODIUM
     Dosage: 5 MG, 1/1 DAY
     Route: 048
     Dates: start: 20130830, end: 20130830
  3. MUCODYNE [Concomitant]
     Active Substance: CARBOCYSTEINE
     Indication: ASTHMA
     Dosage: 250 MG, THREE TIMES A DAY
     Route: 048
     Dates: start: 20130821, end: 20130831
  4. MONTELUKAST [Suspect]
     Active Substance: MONTELUKAST SODIUM
     Indication: ASTHMA
     Dosage: 5 MG, 1/1 DAY
     Route: 048
     Dates: start: 20130821, end: 20130827
  5. HOKUNALIN [Concomitant]
     Active Substance: TULOBUTEROL
     Indication: ASTHMA
     Dosage: 2 MG, 1/1 DAY
     Route: 062
     Dates: start: 20130821, end: 20130827
  6. MONTELUKAST [Suspect]
     Active Substance: MONTELUKAST SODIUM
     Dosage: DAILY DOSE UNKNOWN
     Route: 048
     Dates: start: 201306, end: 2013
  7. CLARITIN REDITABS [Suspect]
     Active Substance: LORATADINE
     Indication: RHINITIS ALLERGIC
     Dosage: 10 MG, ONCE A DAY
     Route: 048
     Dates: start: 20130821, end: 20130831
  8. MONTELUKAST [Suspect]
     Active Substance: MONTELUKAST SODIUM
     Dosage: UNK
     Dates: start: 20130830, end: 20130830
  9. ASTOMIN [Concomitant]
     Active Substance: DIMEMORFAN
     Indication: ASTHMA
     Dosage: 10 MG, THREE TIMES A DAY
     Route: 048
     Dates: start: 20130821, end: 20130831

REACTIONS (1)
  - Enuresis [Recovered/Resolved]

NARRATIVE: CASE EVENT DATE: 20130822
